FAERS Safety Report 9242598 (Version 1)
Quarter: 2013Q2

REPORT INFORMATION
  Report Type: Spontaneous
  Country: FR (occurrence: FR)
  Receive Date: 20130419
  Receipt Date: 20130419
  Transmission Date: 20140414
  Serious: Yes (Other)
  Sender: FDA-Public Use
  Company Number: FR-BRISTOL-MYERS SQUIBB COMPANY-18781963

PATIENT
  Age: 51 Year
  Sex: Male

DRUGS (3)
  1. REYATAZ CAPS 300 MG [Suspect]
     Indication: HIV INFECTION
     Route: 048
     Dates: start: 20110414, end: 20111031
  2. KIVEXA [Concomitant]
     Dosage: 1DF: 600MG+300MG
     Route: 048
     Dates: start: 20110414
  3. NORVIR [Concomitant]
     Route: 048
     Dates: start: 20050919

REACTIONS (4)
  - Renal colic [Recovered/Resolved]
  - Depression [Unknown]
  - Fatigue [Unknown]
  - Abdominal pain upper [Unknown]
